FAERS Safety Report 23873330 (Version 1)
Quarter: 2024Q2

REPORT INFORMATION
  Report Type: Spontaneous
  Country: US (occurrence: None)
  Receive Date: 20240520
  Receipt Date: 20240520
  Transmission Date: 20240716
  Serious: Yes (Other)
  Sender: FDA-Public Use
  Company Number: US-ROCHE-3560376

PATIENT
  Age: 9 Year
  Sex: Male

DRUGS (3)
  1. TAMIFLU [Suspect]
     Active Substance: OSELTAMIVIR PHOSPHATE
     Indication: Influenza
     Route: 065
  2. EPIDIOLEX [Suspect]
     Active Substance: CANNABIDIOL
     Indication: Epilepsy
     Route: 048
     Dates: start: 202301
  3. EPIDIOLEX [Suspect]
     Active Substance: CANNABIDIOL
     Route: 048

REACTIONS (6)
  - Lower limb fracture [Unknown]
  - Influenza [Unknown]
  - Nausea [Unknown]
  - Cough [Unknown]
  - Hypophagia [Unknown]
  - Epilepsy [Unknown]
